FAERS Safety Report 17164626 (Version 1)
Quarter: 2019Q4

REPORT INFORMATION
  Report Type: Spontaneous
  Country: NL (occurrence: FR)
  Receive Date: 20191217
  Receipt Date: 20191217
  Transmission Date: 20200122
  Serious: Yes (Other)
  Sender: FDA-Public Use
  Company Number: FR-BAYER-2019-225022

PATIENT
  Age: 29 Year
  Sex: Female
  Weight: 82 kg

DRUGS (1)
  1. MIRENA [Suspect]
     Active Substance: LEVONORGESTREL
     Indication: INTRAUTERINE CONTRACEPTION
     Dosage: 20 MCG/24HR, CONT
     Route: 015
     Dates: start: 20190612, end: 20190724

REACTIONS (10)
  - Malaise [Recovering/Resolving]
  - Insomnia [Recovering/Resolving]
  - Diffuse alopecia [Recovering/Resolving]
  - Fatigue [Recovering/Resolving]
  - Anxiety [Not Recovered/Not Resolved]
  - Vomiting [Recovering/Resolving]
  - Panic attack [Recovering/Resolving]
  - Abdominal pain upper [Recovering/Resolving]
  - Nausea [Recovering/Resolving]
  - Headache [Recovering/Resolving]

NARRATIVE: CASE EVENT DATE: 20190612
